FAERS Safety Report 8983984 (Version 1)
Quarter: 2012Q4

REPORT INFORMATION
  Report Type: Spontaneous
  Country: US (occurrence: None)
  Receive Date: 20121214
  Receipt Date: 20121214
  Transmission Date: 20130627
  Serious: Yes (Hospitalization)
  Sender: FDA-Public Use
  Company Number: 1520780

PATIENT
  Age: 54 Year
  Sex: Male

DRUGS (3)
  1. EPINEPHRINE [Suspect]
     Indication: ANAPHYLAXIS
     Route: 030
  2. DIPHENHYDRAMINE [Concomitant]
  3. DEXAMETHASONE [Concomitant]

REACTIONS (2)
  - Acute myocardial infarction [None]
  - Acute coronary syndrome [None]
